FAERS Safety Report 22882233 (Version 2)
Quarter: 2023Q4

REPORT INFORMATION
  Report Type: Spontaneous
  Country: JP (occurrence: JP)
  Receive Date: 20230830
  Receipt Date: 20231011
  Transmission Date: 20240110
  Serious: Yes (Other)
  Sender: FDA-Public Use
  Company Number: JP-BAYER-2023A119995

PATIENT
  Age: 7 Decade
  Sex: Male

DRUGS (4)
  1. NUBEQA [Suspect]
     Active Substance: DAROLUTAMIDE
     Indication: Prostate cancer metastatic
     Dosage: 600 MG, BID
     Dates: start: 20230718
  2. DOCETAXEL [Suspect]
     Active Substance: DOCETAXEL
     Dosage: 70MG/M3
     Dates: start: 20230815, end: 20230911
  3. DOCETAXEL [Suspect]
     Active Substance: DOCETAXEL
     Dosage: UNK
     Dates: start: 20230912, end: 20231009
  4. DOCETAXEL [Suspect]
     Active Substance: DOCETAXEL
     Dosage: UNK
     Dates: start: 20231010

REACTIONS (6)
  - Myelosuppression [None]
  - Hepatic function abnormal [None]
  - Aspartate aminotransferase increased [Recovered/Resolved]
  - Alanine aminotransferase increased [Recovered/Resolved]
  - Blood lactate dehydrogenase increased [Recovered/Resolved]
  - Alopecia [None]

NARRATIVE: CASE EVENT DATE: 20230801
